FAERS Safety Report 16305630 (Version 1)
Quarter: 2019Q2

REPORT INFORMATION
  Report Type: Spontaneous
  Country: US (occurrence: US)
  Receive Date: 20190512
  Receipt Date: 20190512
  Transmission Date: 20190711
  Serious: Yes (Other)
  Sender: FDA-Public Use
  Company Number: None

PATIENT
  Age: 59 Year
  Sex: Female
  Weight: 76.5 kg

DRUGS (2)
  1. INSULIN PUMP [Concomitant]
     Active Substance: INSULIN NOS
  2. LAMICTAL [Suspect]
     Active Substance: LAMOTRIGINE

REACTIONS (8)
  - Dark circles under eyes [None]
  - Acne [None]
  - Irritability [None]
  - Aggression [None]
  - Anger [None]
  - Skin odour abnormal [None]
  - Change of bowel habit [None]
  - Suicidal ideation [None]

NARRATIVE: CASE EVENT DATE: 20190509
